FAERS Safety Report 11221622 (Version 1)
Quarter: 2015Q2

REPORT INFORMATION
  Report Type: Spontaneous
  Country: US (occurrence: US)
  Receive Date: 20150626
  Receipt Date: 20150626
  Transmission Date: 20150821
  Serious: Yes (Other)
  Sender: FDA-Public Use
  Company Number: US-UNITED THERAPEUTICS-UNT-2015-007308

PATIENT
  Age: 9 Year
  Sex: Male
  Weight: 33.6 kg

DRUGS (14)
  1. PENTAMIDINE [Concomitant]
     Active Substance: PENTAMIDINE
     Indication: PRODUCT USED FOR UNKNOWN INDICATION
  2. ZYRTEC [Concomitant]
     Active Substance: CETIRIZINE HYDROCHLORIDE
     Indication: PRODUCT USED FOR UNKNOWN INDICATION
  3. HEPARIN FLUSH [Concomitant]
     Indication: PRODUCT USED FOR UNKNOWN INDICATION
  4. ISOTRETINOIN [Suspect]
     Active Substance: ISOTRETINOIN
     Indication: NEUROBLASTOMA
     Dosage: COURSE 2, 80 MG/M2, BID
     Route: 048
     Dates: start: 20150504, end: 20150517
  5. LMX                                /00033401/ [Concomitant]
     Indication: PRODUCT USED FOR UNKNOWN INDICATION
     Route: 061
  6. INTERLEUKIN-2 RECOMBINANT [Suspect]
     Active Substance: ALDESLEUKIN
     Indication: NEUROBLASTOMA
     Dosage: COURSE 2, 4.5X10^6 IU/M2/DAY
     Route: 041
     Dates: start: 20150427, end: 20150501
  7. ISOTRETINOIN [Suspect]
     Active Substance: ISOTRETINOIN
     Dosage: COURSE 1, 80 MG/M2, BID
     Route: 048
     Dates: start: 20150407, end: 20150420
  8. UNITUXIN [Suspect]
     Active Substance: DINUTUXIMAB
     Indication: NEUROBLASTOMA
     Dosage: COURSE 2, 17.5 MG/M2/DAY
     Route: 041
     Dates: start: 20150427, end: 20150501
  9. UNITUXIN [Suspect]
     Active Substance: DINUTUXIMAB
     Dosage: COURSE 1, 17.5 MG/M2/DAY
     Route: 041
     Dates: start: 20150330, end: 20150402
  10. INTERLEUKIN-2 RECOMBINANT [Suspect]
     Active Substance: ALDESLEUKIN
     Dosage: COURSE 2, 3X10^6 IU/M2/DAY
     Route: 041
     Dates: start: 20150420, end: 20150424
  11. ZOFRAN                             /00955301/ [Concomitant]
     Active Substance: ONDANSETRON HYDROCHLORIDE
     Indication: PRODUCT USED FOR UNKNOWN INDICATION
  12. GM-CSF [Suspect]
     Active Substance: GRANULOCYTE-MACROPHAGE COLONY-STIMULATING FACTOR
     Indication: NEUROBLASTOMA
     Dosage: COURSE 1, 250 ?G/M2/DAY
     Route: 058
     Dates: start: 20150327, end: 20150409
  13. ATIVAN [Concomitant]
     Active Substance: LORAZEPAM
     Indication: PRODUCT USED FOR UNKNOWN INDICATION
  14. PREVACID [Concomitant]
     Active Substance: LANSOPRAZOLE
     Indication: PRODUCT USED FOR UNKNOWN INDICATION

REACTIONS (1)
  - Haemolysis [Recovered/Resolved]

NARRATIVE: CASE EVENT DATE: 20150521
